FAERS Safety Report 7513762-1 (Version None)
Quarter: 2011Q2

REPORT INFORMATION
  Report Type: 
  Country: None (occurrence: None)
  Receive Date: 20110531
  Receipt Date: 20110520
  Transmission Date: 20111010
  Serious: Yes (Other)
  Sender: FDA-Public Use
  Company Number: US-BAYER-2011-025473

PATIENT
  Age: 40 Year
  Sex: Female
  Weight: 71 kg

DRUGS (1)
  1. MIRENA [Suspect]
     Indication: CONTRACEPTION
     Dosage: 20 MCG/24HR, ONCE
     Route: 015
     Dates: start: 20100719, end: 20110214

REACTIONS (4)
  - LOSS OF CONSCIOUSNESS [None]
  - ANAEMIA [None]
  - POST PROCEDURAL HAEMORRHAGE [None]
  - HYPOGLYCAEMIA [None]
